FAERS Safety Report 5986179-9 (Version None)
Quarter: 2008Q4

REPORT INFORMATION
  Report Type: 
  Country: None (occurrence: None)
  Receive Date: 20081209
  Receipt Date: 20081203
  Transmission Date: 20090506
  Serious: Yes (Hospitalization)
  Sender: FDA-Public Use
  Company Number: NL-PURDUE-GBR_2008_0004660

PATIENT
  Age: 91 Year
  Sex: Female

DRUGS (4)
  1. OXYCONTIN [Suspect]
     Indication: BACK PAIN
     Dosage: 5 MG, BID
     Route: 065
     Dates: start: 20081008, end: 20081012
  2. ACETAMINOPHEN [Concomitant]
     Indication: BACK PAIN
     Dosage: 1000 MG, TID
     Route: 048
     Dates: start: 20081006
  3. FUROSEMIDE [Concomitant]
     Indication: DRUG USE FOR UNKNOWN INDICATION
     Dosage: 40 MG, DAILY
     Route: 048
     Dates: start: 20080801
  4. STRUMAZOL [Concomitant]
     Indication: HYPOTHYROIDISM
     Dosage: 30 MG, DAILY
     Route: 048
     Dates: start: 20080930

REACTIONS (2)
  - PNEUMONIA [None]
  - PULMONARY EMBOLISM [None]
